FAERS Safety Report 4370116-7 (Version None)
Quarter: 2004Q2

REPORT INFORMATION
  Report Type: 
  Country: None (occurrence: None)
  Receive Date: 20040527
  Receipt Date: 20040513
  Transmission Date: 20050107
  Serious: Yes (Hospitalization)
  Sender: FDA-Public Use
  Company Number: K200400712

PATIENT
  Age: 84 Year
  Sex: Female

DRUGS (5)
  1. ALTACE [Suspect]
     Indication: HYPERTENSION
     Dosage: 5 MG, QD, ORAL
     Route: 048
     Dates: start: 20010101
  2. CONCOR COR (BISOPROLOL) TABLET, 1.25 MG [Suspect]
     Indication: HYPERTENSION
     Dosage: 1.25 MG, QD, ORAL
     Route: 048
     Dates: start: 20010101
  3. MANINIL (GLIBENCLAMIDE) TABLET, 3.5 MG [Suspect]
     Indication: DIABETES MELLITUS
     Dosage: 3.5 MG, QD, ORAL
     Route: 048
     Dates: start: 20021201, end: 20031002
  4. ACETYLSALICYLIC ACID SRT [Concomitant]
  5. L-THYROXIN ^HENNING BERLIN^ (LEVOTHYROXINE SODIUM) [Concomitant]

REACTIONS (3)
  - BLOOD POTASSIUM DECREASED [None]
  - BLOOD SODIUM DECREASED [None]
  - HYPOGLYCAEMIA [None]
